FAERS Safety Report 11755806 (Version 1)
Quarter: 2015Q4

REPORT INFORMATION
  Report Type: Spontaneous
  Country: JP (occurrence: JP)
  Receive Date: 20151119
  Receipt Date: 20151119
  Transmission Date: 20160304
  Serious: Yes (Death, Other)
  Sender: FDA-Public Use
  Company Number: GXJP2015JP001195

PATIENT
  Age: 76 Year
  Sex: Female
  Weight: 33 kg

DRUGS (5)
  1. ETOPOSIDE. [Suspect]
     Active Substance: ETOPOSIDE
     Indication: SMALL CELL LUNG CANCER
     Dosage: 113 MG
     Route: 065
  2. CARBOPLATIN INTRAVENOUS INFUSION [Suspect]
     Active Substance: CARBOPLATIN
     Dosage: UNK
  3. PACLITAXEL. [Suspect]
     Active Substance: PACLITAXEL
     Indication: SMALL CELL LUNG CANCER
     Dosage: 80 MG
     Route: 065
  4. CARBOPLATIN INTRAVENOUS INFUSION [Suspect]
     Active Substance: CARBOPLATIN
     Indication: SMALL CELL LUNG CANCER
     Dosage: 300 MG
     Route: 065
  5. NOGITECAN HYDROCHLORIDE [Suspect]
     Active Substance: TOPOTECAN HYDROCHLORIDE
     Indication: SMALL CELL LUNG CANCER
     Dosage: 1.1 MG
     Route: 065

REACTIONS (13)
  - Varicella zoster virus infection [Fatal]
  - Altered state of consciousness [Fatal]
  - Shock [Fatal]
  - Disease progression [Unknown]
  - Pyrexia [Fatal]
  - Dermatitis bullous [Fatal]
  - Pneumonia [Fatal]
  - Malaise [Fatal]
  - Decreased appetite [Fatal]
  - Tachypnoea [Fatal]
  - Disseminated intravascular coagulation [Fatal]
  - Interstitial lung disease [Unknown]
  - Hepatitis acute [Fatal]
